FAERS Safety Report 16104942 (Version 2)
Quarter: 2019Q1

REPORT INFORMATION
  Report Type: Report from Study
  Country: IN (occurrence: IN)
  Receive Date: 20190322
  Receipt Date: 20190329
  Transmission Date: 20190418
  Serious: Yes (Hospitalization)
  Sender: FDA-Public Use
  Company Number: IN-ROCHE-2285600

PATIENT
  Age: 39 Year
  Sex: Female
  Weight: 71 kg

DRUGS (20)
  1. URSODEOXYCHOLIC ACID [Concomitant]
     Active Substance: URSODIOL
     Indication: CHOLELITHIASIS
  2. BUSCOPAN [Concomitant]
     Active Substance: BUTYLSCOPOLAMINE BROMIDE
     Route: 065
     Dates: start: 20190315, end: 20190321
  3. DOCETAXEL. [Concomitant]
     Active Substance: DOCETAXEL
     Dosage: 6 INJECTION
     Route: 065
  4. AUGMENTAN [Concomitant]
     Active Substance: AMOXICILLIN\CLAVULANATE POTASSIUM
     Route: 048
     Dates: start: 20190315, end: 20190319
  5. BECOSULES-Z [Concomitant]
     Route: 065
     Dates: start: 20190315
  6. ECONORM [Concomitant]
     Route: 065
     Dates: start: 20190315, end: 20190319
  7. LOPERAMID [Concomitant]
     Active Substance: LOPERAMIDE
     Dosage: AS AND WHEN REQUIRED
     Route: 048
     Dates: start: 20190315
  8. BICELTIS [Concomitant]
     Active Substance: TRASTUZUMAB
     Dosage: 6 INJECTION
     Route: 065
  9. ECONORM [Concomitant]
  10. NEXPRO [Concomitant]
     Active Substance: ESOMEPRAZOLE MAGNESIUM
     Indication: DYSPEPSIA
     Route: 048
     Dates: start: 20190315, end: 20190321
  11. URSODEOXYCHOLIC ACID [Concomitant]
     Active Substance: URSODIOL
     Indication: CYSTIC FIBROSIS
     Route: 048
     Dates: start: 20190315
  12. VITAMIN D3 [Concomitant]
     Active Substance: CHOLECALCIFEROL
     Indication: BLOOD CALCIUM DECREASED
     Route: 048
     Dates: start: 20190315
  13. OXYMETAZOLINE [Concomitant]
     Active Substance: OXYMETAZOLINE
     Dosage: 1 PUFF TWICE A DAY
     Route: 045
     Dates: start: 20190315, end: 20190321
  14. OFLOX [Concomitant]
     Active Substance: OFLOXACIN
     Route: 048
     Dates: start: 20190315, end: 20190319
  15. ULTRACET [Concomitant]
     Active Substance: ACETAMINOPHEN\TRAMADOL HYDROCHLORIDE
     Dosage: AS AND WHEN REQUIRE (UPTO 3 TIMES A DAY).
     Route: 048
     Dates: start: 20190315
  16. URSODEOXYCHOLIC ACID [Concomitant]
     Active Substance: URSODIOL
     Indication: BILIARY CIRRHOSIS
  17. DOLO (INDIA) [Concomitant]
     Dosage: AS AND WHEN REQUIRED (FOR HEADACHE)
     Route: 048
     Dates: start: 20190315
  18. ALPRAX [Concomitant]
     Dosage: AS AND WHEN REQUIRE (DURING BED TIME)
     Route: 048
  19. TRASTUZUMAB EMTANSINE [Suspect]
     Active Substance: ADO-TRASTUZUMAB EMTANSINE
     Indication: HER-2 POSITIVE BREAST CANCER
     Dosage: 01/MAR/2019: DATE OF MOST RECENT DOSE OF STUDY DRUG PRIOR TO ONSET.?3.6 MG/KG INTRAVENOUSLY (IV) OVE
     Route: 042
     Dates: start: 20180420
  20. CALCIUM CITRATE [Concomitant]
     Active Substance: CALCIUM CITRATE
     Indication: BLOOD CALCIUM DECREASED
     Route: 048
     Dates: start: 20190315

REACTIONS (1)
  - Haemoglobin decreased [Recovered/Resolved]

NARRATIVE: CASE EVENT DATE: 20190315
